FAERS Safety Report 4760066-6 (Version None)
Quarter: 2005Q3

REPORT INFORMATION
  Report Type: 
  Country: None (occurrence: None)
  Receive Date: 20050831
  Receipt Date: 20050818
  Transmission Date: 20060218
  Serious: Yes (Hospitalization, Other)
  Sender: FDA-Public Use
  Company Number: 2005116947

PATIENT
  Sex: Female

DRUGS (6)
  1. DETROL LA [Suspect]
     Indication: POLLAKIURIA
     Dosage: 4 MG(4 MG,1 IN 1 D),ORAL
     Route: 048
     Dates: start: 20040101
  2. MEPERIDINE HCL [Suspect]
     Indication: PAIN
     Dates: start: 20050101
  3. PHENERGAN ^AVENTIS PHARMA^ (PROMETHAZINE HYDROCHLORIDE) [Concomitant]
  4. AMITRIPTYLINE HCL [Concomitant]
  5. BENADRYL [Concomitant]
  6. CIMETIDINE [Concomitant]

REACTIONS (7)
  - ARTHRALGIA [None]
  - CHONDROPATHY [None]
  - CONSTIPATION [None]
  - DRY MOUTH [None]
  - ECONOMIC PROBLEM [None]
  - POLLAKIURIA [None]
  - URETHRAL PAIN [None]
